FAERS Safety Report 4973541-6 (Version None)
Quarter: 2006Q2

REPORT INFORMATION
  Report Type: 
  Country: None (occurrence: None)
  Receive Date: 20060413
  Receipt Date: 20060413
  Transmission Date: 20061013
  Serious: Yes (Life-Threatening)
  Sender: FDA-Public Use
  Company Number: None

PATIENT
  Age: 58 Year
  Sex: Female
  Weight: 72.5755 kg

DRUGS (6)
  1. ANZEMET [Suspect]
     Indication: NAUSEA
     Dosage: 12.5 MG IV Q4HOURS PRN FOR N/V
     Route: 042
     Dates: start: 20060321
  2. ANZEMET [Suspect]
     Indication: NAUSEA
     Dosage: 12.5 MG IV Q4HOURS PRN FOR N/V
     Route: 042
     Dates: start: 20060323
  3. MSO4 PCA (MORPHINE) [Concomitant]
  4. TORADOL [Concomitant]
  5. ANCEF [Concomitant]
  6. PROTONIX [Concomitant]

REACTIONS (13)
  - ABDOMINAL DISCOMFORT [None]
  - ANAEMIA [None]
  - BLOOD PRESSURE DIASTOLIC DECREASED [None]
  - BLOOD PRESSURE INCREASED [None]
  - BODY TEMPERATURE INCREASED [None]
  - HYPOVOLAEMIA [None]
  - OXYGEN SATURATION DECREASED [None]
  - PAIN [None]
  - PRURITUS [None]
  - PULMONARY EMBOLISM [None]
  - RESPIRATORY RATE INCREASED [None]
  - TACHYCARDIA [None]
  - TREMOR [None]
